FAERS Safety Report 4507639-3 (Version None)
Quarter: 2004Q4

REPORT INFORMATION
  Report Type: 
  Country: None (occurrence: None)
  Receive Date: 20041118
  Receipt Date: 20041101
  Transmission Date: 20050328
  Serious: Yes (Other)
  Sender: FDA-Public Use
  Company Number: B0350262A

PATIENT
  Age: 26 Month
  Sex: Male

DRUGS (3)
  1. LAMICTAL [Suspect]
     Dosage: 2 MG/KG/ PER DAY
  2. VALPROATE SODIUM [Suspect]
  3. PHENOBARBITONE [Concomitant]

REACTIONS (3)
  - CHROMOSOME ABNORMALITY [None]
  - HEPATITIS TOXIC [None]
  - RASH MACULO-PAPULAR [None]
